FAERS Safety Report 16069258 (Version 1)
Quarter: 2019Q1

REPORT INFORMATION
  Report Type: Spontaneous
  Country: GB (occurrence: GB)
  Receive Date: 20190313
  Receipt Date: 20190313
  Transmission Date: 20190418
  Serious: Yes (Life-Threatening, Hospitalization)
  Sender: FDA-Public Use
  Company Number: PHHY2019GB056101

PATIENT
  Age: 23 Year
  Sex: Male

DRUGS (3)
  1. LABETALOL [Suspect]
     Active Substance: LABETALOL\LABETALOL HYDROCHLORIDE
     Indication: INTENTIONAL OVERDOSE
     Dosage: 2800 MG, (WITH 1 LITRE OF ALCOHOL)
     Route: 048
  2. IBUPROFEN. [Suspect]
     Active Substance: IBUPROFEN
     Indication: BACK PAIN
     Dosage: 400 MG, Q4H (200-400 MG EVERY 4 HOURS)
     Route: 048
  3. COCAINE [Suspect]
     Active Substance: COCAINE
     Indication: PRODUCT USED FOR UNKNOWN INDICATION
     Dosage: 2-3 G MOST WEEKENDS
     Route: 065

REACTIONS (1)
  - Acute kidney injury [Unknown]
